FAERS Safety Report 7581638-X (Version None)
Quarter: 2011Q2

REPORT INFORMATION
  Report Type: 
  Country: None (occurrence: None)
  Receive Date: 20110629
  Receipt Date: 20110616
  Transmission Date: 20111010
  Serious: Yes (Hospitalization, Other)
  Sender: FDA-Public Use
  Company Number: CA-JNJFOC-20110406261

PATIENT
  Sex: Male
  Weight: 120 kg

DRUGS (12)
  1. ZANTAC [Concomitant]
     Route: 048
  2. LASIX [Concomitant]
     Route: 048
  3. VITAMIN TAB [Concomitant]
     Route: 048
  4. GABAPENTIN [Concomitant]
     Route: 048
  5. ASPIRIN [Concomitant]
     Route: 048
  6. REMICADE [Suspect]
     Route: 042
     Dates: start: 20110413
  7. MICRO-K [Concomitant]
     Route: 048
  8. HYDROMORPHONE HCL [Concomitant]
     Route: 048
  9. REMICADE [Suspect]
     Indication: CROHN'S DISEASE
     Route: 042
  10. NAPROSYN [Concomitant]
     Route: 048
  11. AZATHIOPRINE [Concomitant]
     Dosage: FOR YEARS
     Route: 048
  12. NITRO PATCH (NITROGLYCERIN) [Concomitant]
     Route: 065
     Dates: start: 20110412

REACTIONS (7)
  - MYOCARDIAL INFARCTION [None]
  - DYSPNOEA EXERTIONAL [None]
  - INCISION SITE INFECTION [None]
  - CHEST PAIN [None]
  - BLOOD PRESSURE INCREASED [None]
  - CORONARY ARTERY DISEASE [None]
  - OEDEMA PERIPHERAL [None]
